FAERS Safety Report 23444061 (Version 5)
Quarter: 2024Q1

REPORT INFORMATION
  Report Type: Spontaneous
  Country: FR (occurrence: FR)
  Receive Date: 20240125
  Receipt Date: 20240302
  Transmission Date: 20240409
  Serious: Yes (Hospitalization, Other)
  Sender: FDA-Public Use
  Company Number: None

PATIENT
  Age: 67 Year
  Sex: Male
  Weight: 60 kg

DRUGS (8)
  1. DESLORATADINE [Suspect]
     Active Substance: DESLORATADINE
     Indication: Chemotherapy side effect prophylaxis
     Dosage: 5 MILLIGRAM, ONCE
     Route: 048
     Dates: start: 20240111, end: 20240111
  2. APREPITANT [Suspect]
     Active Substance: APREPITANT
     Indication: Chemotherapy side effect prophylaxis
     Dosage: 125 MILLIGRAM, ONCE
     Route: 048
     Dates: start: 20240111, end: 20240111
  3. CETUXIMAB [Suspect]
     Active Substance: CETUXIMAB
     Indication: Colon cancer metastatic
     Dosage: 830 MILLIGRAM, ONCE
     Route: 042
     Dates: start: 20240111, end: 20240111
  4. ONDANSETRON [Suspect]
     Active Substance: ONDANSETRON
     Indication: Chemotherapy side effect prophylaxis
     Dosage: 8 MILLIGRAM, ONCE
     Route: 065
     Dates: start: 20240111, end: 20240111
  5. METHYLPREDNISOLONE HEMISUCCINATE [Suspect]
     Active Substance: METHYLPREDNISOLONE HEMISUCCINATE
     Indication: Chemotherapy side effect prophylaxis
     Dosage: 120 MILLIGRAM, ONCE
     Route: 065
     Dates: start: 20240111, end: 20240111
  6. TOPIRAMATE [Concomitant]
     Active Substance: TOPIRAMATE
     Dosage: UNK
  7. TEGRETOL [Concomitant]
     Active Substance: CARBAMAZEPINE
     Dosage: UNK (SUSTAINED-RELEASE FILM-COATED TABLET)
  8. VIMPAT [Concomitant]
     Active Substance: LACOSAMIDE
     Dosage: UNK

REACTIONS (1)
  - Epilepsy [Recovered/Resolved]

NARRATIVE: CASE EVENT DATE: 20240111
